FAERS Safety Report 20337993 (Version 1)
Quarter: 2022Q1

REPORT INFORMATION
  Report Type: Other
  Country: US (occurrence: None)
  Receive Date: 20220115
  Receipt Date: 20220115
  Transmission Date: 20220423
  Serious: Yes (Other)
  Sender: FDA-Public Use
  Company Number: US-ROCHE-2997982

PATIENT
  Sex: Male

DRUGS (7)
  1. XELODA [Suspect]
     Active Substance: CAPECITABINE
     Indication: Colorectal cancer metastatic
     Dosage: TAKE 4 TABLET(S) BY MOUTH TWICE A DAY FOR 14 DAYS WITH 7 DAYS OFF,?REPEAT EVERY 21 DAYS
     Route: 048
  2. LACTULOSE [Concomitant]
     Active Substance: LACTULOSE
  3. VITAMIN C [Concomitant]
     Active Substance: ASCORBIC ACID
  4. SINAREST [CAFFEINE;CHLORPHENAMINE MALEATE;PARACETAMOL;PHENYLEPHRINE HY [Concomitant]
  5. GABAPENTIN [Concomitant]
     Active Substance: GABAPENTIN
  6. SYNTHROID [Concomitant]
     Active Substance: LEVOTHYROXINE SODIUM
  7. VITAMIN B12 [Concomitant]
     Active Substance: CYANOCOBALAMIN

REACTIONS (1)
  - Lymphadenopathy [Unknown]
